FAERS Safety Report 9862017 (Version 1)
Quarter: 2014Q1

REPORT INFORMATION
  Report Type: Spontaneous
  Country: US (occurrence: None)
  Receive Date: 20140131
  Receipt Date: 20140131
  Transmission Date: 20141002
  Serious: Yes (Life-Threatening, Hospitalization)
  Sender: FDA-Public Use
  Company Number: None

PATIENT
  Age: 62 Year
  Sex: Male
  Weight: 84 kg

DRUGS (7)
  1. ACETAMINOPHEN [Suspect]
  2. AMITRIPTYLINE (AMITRIPTYLINE) [Concomitant]
  3. BUDESONIDE-FORMOTEROL (SYMBICORT) [Concomitant]
  4. CARVEDILOL (COREG) [Concomitant]
  5. FLUOXETINE (FLUOXETINE) [Concomitant]
  6. LEVOTHYROXINE (SYNTHROID) [Concomitant]
  7. LISINOPRIL (LISINOPRIL) [Concomitant]

REACTIONS (1)
  - Acute hepatic failure [None]
